FAERS Safety Report 5516577-9 (Version None)
Quarter: 2007Q4

REPORT INFORMATION
  Report Type: 
  Country: None (occurrence: None)
  Receive Date: 20071114
  Receipt Date: 20071108
  Transmission Date: 20080405
  Serious: Yes (Other)
  Sender: FDA-Public Use
  Company Number: CA-JNJFOC-20071103850

PATIENT
  Sex: Male

DRUGS (1)
  1. CONCERTA [Suspect]
     Indication: DRUG USE FOR UNKNOWN INDICATION
     Route: 048

REACTIONS (6)
  - ANTISOCIAL BEHAVIOUR [None]
  - HEAD BANGING [None]
  - INTENTIONAL SELF-INJURY [None]
  - PURPURA [None]
  - TARDIVE DYSKINESIA [None]
  - TIC [None]
